FAERS Safety Report 9730955 (Version 1)
Quarter: 2013Q4

REPORT INFORMATION
  Report Type: Report from Study
  Country: AR (occurrence: AR)
  Receive Date: 20131203
  Receipt Date: 20131203
  Transmission Date: 20140711
  Serious: Yes (Other)
  Sender: FDA-Public Use
  Company Number: PHHY2013AR139893

PATIENT
  Age: 73 Year
  Sex: Female

DRUGS (1)
  1. ONBREZ [Suspect]
     Dosage: UNK
     Dates: start: 201306

REACTIONS (2)
  - Cerebral infarction [Not Recovered/Not Resolved]
  - Visual acuity reduced [Not Recovered/Not Resolved]
